FAERS Safety Report 15668256 (Version 1)
Quarter: 2018Q4

REPORT INFORMATION
  Report Type: Report from Study
  Country: IT (occurrence: IT)
  Receive Date: 20181129
  Receipt Date: 20181129
  Transmission Date: 20190205
  Serious: Yes (Other)
  Sender: FDA-Public Use
  Company Number: IT-TEVA-2018-IT-979310

PATIENT
  Age: 73 Year
  Sex: Female
  Weight: 80 kg

DRUGS (3)
  1. INDERAL 40 MG COMPRESSE. [Concomitant]
     Route: 048
  2. FLUOROURACILE TEVA 5 G/100 ML SOLUZIONE PER INFUSIONE [Suspect]
     Active Substance: FLUOROURACIL
     Indication: COLON CANCER
     Route: 042
     Dates: start: 20181005
  3. OXALIPLATINO KABI 5 MG/ML CONCENTRATO PER SOLUZIONE PER INFUSIONE [Concomitant]
     Active Substance: OXALIPLATIN
     Indication: COLON CANCER
     Dates: start: 20181005

REACTIONS (1)
  - Bradycardia [Recovered/Resolved]

NARRATIVE: CASE EVENT DATE: 20181005
